FAERS Safety Report 9685475 (Version 1)
Quarter: 2013Q4

REPORT INFORMATION
  Report Type: Spontaneous
  Country: US (occurrence: None)
  Receive Date: 20131112
  Receipt Date: 20131112
  Transmission Date: 20140711
  Serious: Yes (Other)
  Sender: FDA-Public Use
  Company Number: None

PATIENT
  Age: 18 Year
  Sex: Female
  Weight: 54.43 kg

DRUGS (8)
  1. ALPRAZOLAM [Suspect]
     Indication: POST-TRAUMATIC STRESS DISORDER
     Route: 048
     Dates: start: 20130901, end: 20131111
  2. ALPRAZOLAM [Suspect]
     Indication: GENERALISED ANXIETY DISORDER
     Route: 048
     Dates: start: 20130901, end: 20131111
  3. ABILIFY [Concomitant]
  4. ADDERALL XR [Concomitant]
  5. ANTI-DEPRESSANTS WITH A/E [Concomitant]
  6. LORAZEPAM [Concomitant]
  7. CLONAZEPAM [Concomitant]
  8. LAMICTAL [Concomitant]

REACTIONS (1)
  - Drug effect decreased [None]
